FAERS Safety Report 23784241 (Version 2)
Quarter: 2024Q2

REPORT INFORMATION
  Report Type: Spontaneous
  Country: GB (occurrence: GB)
  Receive Date: 20240425
  Receipt Date: 20240430
  Transmission Date: 20240716
  Serious: Yes (Death)
  Sender: FDA-Public Use
  Company Number: GB-PFIZER INC-202400093434

PATIENT
  Age: 68 Year
  Sex: Male

DRUGS (1)
  1. DALTEPARIN SODIUM [Suspect]
     Active Substance: DALTEPARIN SODIUM
     Indication: Deep vein thrombosis
     Dosage: UNK
     Dates: start: 202210

REACTIONS (3)
  - Product prescribing issue [Fatal]
  - Product administration error [Fatal]
  - Death [Fatal]

NARRATIVE: CASE EVENT DATE: 20221001
